FAERS Safety Report 8253891-0 (Version None)
Quarter: 2012Q2

REPORT INFORMATION
  Report Type: 
  Country: None (occurrence: None)
  Receive Date: 20120402
  Receipt Date: 20120316
  Transmission Date: 20120825
  Serious: No
  Sender: FDA-Public Use
  Company Number: US-AMGEN-USASP2012017299

PATIENT
  Age: 13 Year
  Sex: Male

DRUGS (2)
  1. ENBREL [Suspect]
     Indication: JUVENILE ARTHRITIS
     Dosage: 50 MG, QWK
     Dates: start: 20120128
  2. METHOTREXATE [Concomitant]
     Dosage: UNK
     Dates: start: 20090101

REACTIONS (4)
  - INJECTION SITE PAIN [None]
  - OROPHARYNGEAL PAIN [None]
  - COUGH [None]
  - PYREXIA [None]
